FAERS Safety Report 7169728-7 (Version None)
Quarter: 2010Q4

REPORT INFORMATION
  Report Type: 
  Country: None (occurrence: None)
  Receive Date: 20101214
  Receipt Date: 20101214
  Transmission Date: 20110411
  Serious: Yes (Other)
  Sender: FDA-Public Use
  Company Number: None

PATIENT
  Age: 10 Year
  Sex: Male
  Weight: 58.0604 kg

DRUGS (3)
  1. REMICADE [Suspect]
     Indication: PSORIASIS
     Dosage: EVERY 4 WEEKS IV DRIP
     Route: 041
     Dates: start: 20101123, end: 20101123
  2. REMICADE [Suspect]
     Indication: PSORIATIC ARTHROPATHY
     Dosage: EVERY 4 WEEKS IV DRIP
     Route: 041
     Dates: start: 20101123, end: 20101123
  3. REMICADE [Suspect]

REACTIONS (6)
  - BLOOD PRESSURE DECREASED [None]
  - DISEASE PROGRESSION [None]
  - DRUG INEFFECTIVE [None]
  - PRODUCT QUALITY ISSUE [None]
  - PSORIASIS [None]
  - PSORIATIC ARTHROPATHY [None]
